FAERS Safety Report 7817517-X (Version None)
Quarter: 2011Q4

REPORT INFORMATION
  Report Type: 
  Country: None (occurrence: None)
  Receive Date: 20111017
  Receipt Date: 20111005
  Transmission Date: 20120403
  Serious: Yes (Hospitalization, Other)
  Sender: FDA-Public Use
  Company Number: BR-ROCHE-770085

PATIENT
  Sex: Female
  Weight: 58 kg

DRUGS (13)
  1. FOLIC ACID [Concomitant]
  2. TORAGESIC [Concomitant]
     Indication: PAIN
  3. ACTEMRA [Suspect]
     Route: 042
     Dates: start: 20100801, end: 20100801
  4. ACTEMRA [Suspect]
     Route: 042
  5. AMITRIPTYLINE HCL [Concomitant]
  6. PROMETHAZINE HCL [Suspect]
     Indication: HYPERSENSITIVITY
     Dosage: START DATE, STOP DATE, DOSE, ROUTE AND FREQUENCY NOT PROVIDED.
     Route: 065
  7. PANTOPRAZOLE [Concomitant]
  8. ACTEMRA [Suspect]
     Route: 042
     Dates: start: 20100715, end: 20100715
  9. METHOTREXATE [Concomitant]
     Dosage: FREQUENCY REPORTED AS 5 TABLETS PER WEEK.
  10. PREDNISOLONE [Concomitant]
  11. ACTEMRA [Suspect]
     Indication: RHEUMATOID ARTHRITIS
     Dosage: EVERY 28 DAYS CYCLE, DRUG REPORTED AS ACTEMRA
     Route: 042
  12. ACTEMRA [Suspect]
     Route: 042
     Dates: start: 20100615, end: 20100615
  13. TRAMADOL HYDROCHLORIDE [Concomitant]

REACTIONS (7)
  - RHEUMATOID ARTHRITIS [None]
  - BLOOD PRESSURE FLUCTUATION [None]
  - HYPERSENSITIVITY [None]
  - DRUG INTOLERANCE [None]
  - RASH MACULAR [None]
  - ARTHROPATHY [None]
  - PAIN [None]
